FAERS Safety Report 16228551 (Version 1)
Quarter: 2019Q2

REPORT INFORMATION
  Report Type: Spontaneous
  Country: US (occurrence: US)
  Receive Date: 20190422
  Receipt Date: 20190422
  Transmission Date: 20190711
  Serious: Yes (Hospitalization, Other)
  Sender: FDA-Public Use
  Company Number: None

PATIENT
  Age: 33 Year
  Sex: Male
  Weight: 80.2 kg

DRUGS (3)
  1. CALCIUM GLUCONATE INFUSION [Concomitant]
     Dates: start: 20190417, end: 20190417
  2. GCS-F [Concomitant]
     Dates: start: 20190411, end: 20190415
  3. ANTICOAGULANT CITRATE DEXTROSE A ACD-A [Suspect]
     Active Substance: CITRIC ACID MONOHYDRATE\DEXTROSE MONOHYDRATE\SODIUM CITRATE
     Indication: ANTICOAGULANT THERAPY
     Dosage: ?          OTHER FREQUENCY:ONCE;OTHER ROUTE:EXTRACORPOREAL?
     Dates: start: 20190416, end: 20190417

REACTIONS (6)
  - Hypocalcaemia [None]
  - Dyspnoea [None]
  - Paraesthesia [None]
  - Tetany [None]
  - Hypoaesthesia [None]
  - Movement disorder [None]

NARRATIVE: CASE EVENT DATE: 20190417
